FAERS Safety Report 7770404-8 (Version None)
Quarter: 2011Q3

REPORT INFORMATION
  Report Type: 
  Country: None (occurrence: None)
  Receive Date: 20110922
  Receipt Date: 20100827
  Transmission Date: 20111222
  Serious: No
  Sender: FDA-Public Use
  Company Number: US-ASTRAZENECA-2010SE40463

PATIENT
  Age: 42 Year
  Sex: Female
  Weight: 112.9 kg

DRUGS (1)
  1. SEROQUEL XR [Suspect]
     Indication: BIPOLAR DISORDER
     Route: 048
     Dates: start: 20100301

REACTIONS (1)
  - INCORRECT DOSE ADMINISTERED [None]
